FAERS Safety Report 9079094 (Version 1)
Quarter: 2013Q1

REPORT INFORMATION
  Report Type: Spontaneous
  Country: DE (occurrence: CA)
  Receive Date: 20130130
  Receipt Date: 20130130
  Transmission Date: 20140127
  Serious: Yes (Hospitalization)
  Sender: FDA-Public Use
  Company Number: CA-FRI-1000042255

PATIENT
  Age: 66 Year
  Sex: Female

DRUGS (3)
  1. ROFLUMILAST [Suspect]
     Dosage: 500 MCG
     Route: 048
     Dates: start: 201211
  2. PRIMIDONE [Concomitant]
     Dosage: 125 MG
  3. PRADAX [Concomitant]
     Dosage: 300 MG
     Dates: start: 201110

REACTIONS (6)
  - Tachycardia [Recovering/Resolving]
  - Emotional distress [Unknown]
  - Gout [Unknown]
  - Increased tendency to bruise [Unknown]
  - Tremor [Unknown]
  - Diarrhoea [Recovered/Resolved]
